FAERS Safety Report 4848702-7 (Version None)
Quarter: 2005Q4

REPORT INFORMATION
  Report Type: 
  Country: None (occurrence: None)
  Receive Date: 20051208
  Receipt Date: 20051128
  Transmission Date: 20060501
  Serious: Yes (Hospitalization, Other)
  Sender: FDA-Public Use
  Company Number: US-BRISTOL-MYERS SQUIBB COMPANY-13194592

PATIENT
  Age: 52 Year
  Sex: Female
  Weight: 83 kg

DRUGS (4)
  1. ABILIFY [Suspect]
     Indication: POSTPARTUM DEPRESSION
     Dates: start: 20051114, end: 20051124
  2. ABILIFY [Suspect]
     Indication: MANIA
     Dates: start: 20051114, end: 20051124
  3. SYNTHROID [Concomitant]
  4. CONTRACEPTIVE [Concomitant]
     Route: 048

REACTIONS (2)
  - BRONCHOSPASM [None]
  - COUGH [None]
